FAERS Safety Report 23042058 (Version 2)
Quarter: 2023Q4

REPORT INFORMATION
  Report Type: Spontaneous
  Country: US (occurrence: US)
  Receive Date: 20231008
  Receipt Date: 20231110
  Transmission Date: 20240110
  Serious: No
  Sender: FDA-Public Use
  Company Number: US-SA-SAC20231003001811

PATIENT
  Sex: Female

DRUGS (2)
  1. DUPIXENT [Suspect]
     Active Substance: DUPILUMAB
     Dosage: 300 MG, QOW
     Route: 058
  2. INSULIN NOS [Suspect]
     Active Substance: INSULIN NOS
     Dosage: UNK UNK, QD

REACTIONS (2)
  - Infection [Unknown]
  - Injection site bruising [Unknown]
